FAERS Safety Report 6828446-2 (Version None)
Quarter: 2010Q3

REPORT INFORMATION
  Report Type: 
  Country: None (occurrence: None)
  Receive Date: 20100709
  Receipt Date: 20070212
  Transmission Date: 20110219
  Serious: No
  Sender: FDA-Public Use
  Company Number: US-PFIZER INC-2007010249

PATIENT
  Sex: Male
  Weight: 75.75 kg

DRUGS (7)
  1. CHANTIX [Suspect]
     Indication: SMOKING CESSATION THERAPY
     Dates: start: 20070201
  2. VALIUM [Concomitant]
     Indication: NERVOUSNESS
  3. METHADONE [Concomitant]
     Indication: PAIN
  4. BENTYL [Concomitant]
  5. CHOLESTYRAMINE RESIN [Concomitant]
  6. PROTONIX [Concomitant]
  7. HERBAL PREPARATION INGREDIENTS UNKNOWN [Concomitant]

REACTIONS (5)
  - FEELING ABNORMAL [None]
  - PARAESTHESIA [None]
  - PERIPHERAL COLDNESS [None]
  - SKIN DISORDER [None]
  - SOMNOLENCE [None]
